FAERS Safety Report 8134053-4 (Version None)
Quarter: 2012Q1

REPORT INFORMATION
  Report Type: 
  Country: None (occurrence: None)
  Receive Date: 20120214
  Receipt Date: 20120202
  Transmission Date: 20120608
  Serious: Yes (Hospitalization)
  Sender: FDA-Public Use
  Company Number: US-BIOGENIDEC-2012BI004393

PATIENT
  Age: 26 Year
  Sex: Female

DRUGS (2)
  1. TYSABRI [Suspect]
     Indication: MULTIPLE SCLEROSIS
     Route: 042
     Dates: start: 20090507, end: 20090930
  2. TYSABRI [Suspect]
     Route: 042
     Dates: start: 20111115, end: 20111219

REACTIONS (18)
  - GAIT DISTURBANCE [None]
  - CYSTITIS [None]
  - INFECTION [None]
  - CONVULSION [None]
  - ABDOMINAL PAIN [None]
  - FOOT DEFORMITY [None]
  - NECROSIS [None]
  - DYSPNOEA [None]
  - MULTIPLE SCLEROSIS RELAPSE [None]
  - TACHYCARDIA [None]
  - VOMITING [None]
  - DIARRHOEA [None]
  - SUICIDAL IDEATION [None]
  - ABNORMAL DREAMS [None]
  - HYPOAESTHESIA [None]
  - URINARY INCONTINENCE [None]
  - RESPIRATORY ARREST [None]
  - PYREXIA [None]
